FAERS Safety Report 4751458-X (Version None)
Quarter: 2005Q3

REPORT INFORMATION
  Report Type: 
  Country: None (occurrence: None)
  Receive Date: 20050824
  Receipt Date: 20050513
  Transmission Date: 20060218
  Serious: Yes (Hospitalization, Disabling)
  Sender: FDA-Public Use
  Company Number: US-MERCK-0505USA01954

PATIENT
  Age: 62 Year
  Sex: Female
  Weight: 73 kg

DRUGS (12)
  1. VIOXX [Suspect]
     Indication: OSTEOARTHRITIS
     Route: 048
     Dates: start: 19991101, end: 20020401
  2. VIOXX [Suspect]
     Route: 048
     Dates: end: 20040101
  3. VIOXX [Suspect]
     Indication: BACK PAIN
     Route: 048
     Dates: start: 19991101, end: 20020401
  4. VIOXX [Suspect]
     Route: 048
     Dates: end: 20040101
  5. DETROL LA [Concomitant]
     Indication: HYPERTONIC BLADDER
     Route: 065
  6. PAXIL [Concomitant]
     Route: 065
  7. NASONEX [Concomitant]
     Indication: HYPERSENSITIVITY
     Route: 065
  8. SINGULAIR [Concomitant]
     Indication: HYPERSENSITIVITY
     Route: 048
  9. ATENOLOL [Concomitant]
     Route: 065
  10. ENDOCET [Concomitant]
     Route: 065
  11. ADVIL [Concomitant]
     Indication: PAIN
     Route: 065
     Dates: start: 19920101
  12. ULTRAM [Concomitant]
     Indication: PAIN
     Route: 065
     Dates: start: 19991101

REACTIONS (36)
  - ABDOMINAL PAIN [None]
  - ANGINA PECTORIS [None]
  - ARTHRALGIA [None]
  - ASTHMA [None]
  - BACK INJURY [None]
  - BEREAVEMENT REACTION [None]
  - BLOOD GLUCOSE INCREASED [None]
  - BLOOD PRESSURE INCREASED [None]
  - BUNION [None]
  - CHEST PAIN [None]
  - COLITIS [None]
  - CORONARY ARTERY DISEASE [None]
  - COUGH [None]
  - DIZZINESS [None]
  - DYSPNOEA EXERTIONAL [None]
  - GALLBLADDER DISORDER [None]
  - GASTROINTESTINAL DISORDER [None]
  - GASTROOESOPHAGEAL REFLUX DISEASE [None]
  - GRANULOMA [None]
  - HEADACHE [None]
  - HERNIA [None]
  - HIATUS HERNIA [None]
  - HYPERTRIGLYCERIDAEMIA [None]
  - MIDDLE EAR EFFUSION [None]
  - MUSCULOSKELETAL CHEST PAIN [None]
  - MYOCARDIAL INFARCTION [None]
  - NON-CARDIAC CHEST PAIN [None]
  - OESOPHAGEAL SPASM [None]
  - PANCREATITIS CHRONIC [None]
  - PNEUMONIA [None]
  - PYREXIA [None]
  - ROAD TRAFFIC ACCIDENT [None]
  - STOMACH DISCOMFORT [None]
  - TENDONITIS [None]
  - VASCULAR GRAFT OCCLUSION [None]
  - VERTIGO POSITIONAL [None]
